FAERS Safety Report 11876688 (Version 1)
Quarter: 2015Q4

REPORT INFORMATION
  Report Type: Report from Study
  Country: JP (occurrence: JP)
  Receive Date: 20151229
  Receipt Date: 20151229
  Transmission Date: 20160305
  Serious: Yes (Death, Hospitalization)
  Sender: FDA-Public Use
  Company Number: JP-EISAI MEDICAL RESEARCH-EC-2015-013123

PATIENT
  Age: 62 Year
  Sex: Male
  Weight: 57 kg

DRUGS (1)
  1. LENVIMA [Suspect]
     Active Substance: LENVATINIB
     Indication: POORLY DIFFERENTIATED THYROID CARCINOMA
     Route: 048
     Dates: start: 20150713, end: 20150916

REACTIONS (1)
  - Candida sepsis [Recovered/Resolved]

NARRATIVE: CASE EVENT DATE: 20150926
